FAERS Safety Report 6449683-5 (Version None)
Quarter: 2009Q4

REPORT INFORMATION
  Report Type: 
  Country: None (occurrence: None)
  Receive Date: 20091120
  Receipt Date: 20090115
  Transmission Date: 20100525
  Serious: Yes (Other)
  Sender: FDA-Public Use
  Company Number: US-AMGEN-QUU328871

PATIENT
  Age: 48 Year
  Sex: Female

DRUGS (3)
  1. ENBREL [Suspect]
     Indication: DRUG USE FOR UNKNOWN INDICATION
     Route: 030
     Dates: start: 20060101, end: 20080501
  2. METHOTREXATE [Concomitant]
     Route: 048
  3. ORENCIA [Concomitant]
     Route: 065
     Dates: start: 20080501, end: 20090101

REACTIONS (1)
  - COLON CANCER [None]
